FAERS Safety Report 7423770-7 (Version None)
Quarter: 2011Q2

REPORT INFORMATION
  Report Type: 
  Country: None (occurrence: None)
  Receive Date: 20110411
  Receipt Date: 20110328
  Transmission Date: 20111010
  Serious: Yes (Hospitalization)
  Sender: FDA-Public Use
  Company Number: 2010001048

PATIENT
  Age: 49 Year
  Sex: Male

DRUGS (7)
  1. FERROUS SULFATE TAB [Concomitant]
  2. TRANEXAMIC ACID (TRANEXAMIC ACID) [Concomitant]
  3. METOCLOPRAMIDE [Concomitant]
  4. GEMCITABINE (GEMCITABINE) [Suspect]
     Indication: NON-SMALL CELL LUNG CANCER
     Dosage: 2000 MG, INTRAVENOUS
     Route: 042
     Dates: start: 20090908
  5. MULTIVITAMIN NOS [Concomitant]
  6. ERLOTINIB (ERLOTINIB) (TABLET) [Suspect]
     Indication: NON-SMALL CELL LUNG CANCER
     Dosage: MG, 1 TABLET DAILY, ORAL
     Route: 048
     Dates: start: 20090922
  7. CARBOPLATIN [Suspect]
     Indication: NON-SMALL CELL LUNG CANCER
     Dosage: 450 MG, INTRAVENOUS
     Route: 042
     Dates: start: 20090908

REACTIONS (1)
  - ANAEMIA [None]
